FAERS Safety Report 6486275-6 (Version None)
Quarter: 2009Q4

REPORT INFORMATION
  Report Type: 
  Country: None (occurrence: None)
  Receive Date: 20091209
  Receipt Date: 20090814
  Transmission Date: 20100525
  Serious: No
  Sender: FDA-Public Use
  Company Number: US-AMGEN-KDL357699

PATIENT
  Sex: Female
  Weight: 47.7 kg

DRUGS (1)
  1. ENBREL [Suspect]
     Indication: RHEUMATOID ARTHRITIS
     Route: 058
     Dates: start: 20080201, end: 20090726

REACTIONS (3)
  - BACK PAIN [None]
  - HEADACHE [None]
  - RHEUMATOID ARTHRITIS [None]
